FAERS Safety Report 19822166 (Version 1)
Quarter: 2021Q3

REPORT INFORMATION
  Report Type: Spontaneous
  Country: US (occurrence: US)
  Receive Date: 20210909
  Receipt Date: 20210909
  Transmission Date: 20211014
  Serious: No
  Sender: FDA-Public Use
  Company Number: None

PATIENT
  Age: 39 Year
  Sex: Female

DRUGS (1)
  1. ARISTADA [Suspect]
     Active Substance: ARIPIPRAZOLE LAUROXIL
     Indication: SCHIZOPHRENIA
     Dosage: ?          OTHER FREQUENCY:Q 6 WEEKS;?
     Route: 030
     Dates: start: 20210217

REACTIONS (1)
  - Agitation [None]

NARRATIVE: CASE EVENT DATE: 20210810
